FAERS Safety Report 13617668 (Version 4)
Quarter: 2020Q3

REPORT INFORMATION
  Report Type: Spontaneous
  Country: US (occurrence: US)
  Receive Date: 20170606
  Receipt Date: 20200921
  Transmission Date: 20201102
  Serious: Yes (Other)
  Sender: FDA-Public Use
  Company Number: US-SA-2017SA007278

PATIENT
  Age: 81 Year
  Sex: Female

DRUGS (6)
  1. LANTUS SOLOSTAR [Suspect]
     Active Substance: INSULIN GLARGINE
     Dosage: 30 IU, QD
     Route: 051
     Dates: start: 2016
  2. LANTUS SOLOSTAR [Suspect]
     Active Substance: INSULIN GLARGINE
     Dosage: UNK UNK, QD
     Route: 051
  3. LANTUS SOLOSTAR [Suspect]
     Active Substance: INSULIN GLARGINE
     Dosage: 20 IU
     Route: 051
  4. LANTUS SOLOSTAR [Suspect]
     Active Substance: INSULIN GLARGINE
     Dosage: 25 IU, QD
     Route: 051
  5. LANTUS SOLOSTAR [Suspect]
     Active Substance: INSULIN GLARGINE
     Indication: TYPE 2 DIABETES MELLITUS
     Dosage: 12 IU
     Route: 051
     Dates: start: 201511
  6. LANTUS SOLOSTAR [Suspect]
     Active Substance: INSULIN GLARGINE
     Dosage: 35 IU, QD AT NIGHT

REACTIONS (15)
  - Cataract [Unknown]
  - Arthritis [Unknown]
  - Fall [Unknown]
  - Intentional product use issue [Unknown]
  - Wrong technique in device usage process [Unknown]
  - Peripheral swelling [Unknown]
  - Grip strength decreased [Unknown]
  - Blood glucose increased [Recovering/Resolving]
  - Fungal infection [Unknown]
  - Weight increased [Unknown]
  - Abdominal pain [Unknown]
  - Vertigo [Unknown]
  - Blood glucose increased [Unknown]
  - Visual impairment [Unknown]
  - Hunger [Unknown]

NARRATIVE: CASE EVENT DATE: 20170511
